FAERS Safety Report 14852544 (Version 1)
Quarter: 2018Q2

REPORT INFORMATION
  Report Type: Report from Study
  Country: DE (occurrence: DE)
  Receive Date: 20180507
  Receipt Date: 20180507
  Transmission Date: 20180711
  Serious: Yes (Other)
  Sender: FDA-Public Use
  Company Number: DE-ROCHE-2116876

PATIENT

DRUGS (12)
  1. CYCLOSPORINE A [Suspect]
     Active Substance: CYCLOSPORINE
     Indication: STILL^S DISEASE
     Route: 065
  2. METHOTREXATE. [Suspect]
     Active Substance: METHOTREXATE
     Indication: STILL^S DISEASE
     Route: 065
  3. CANAKINUMAB. [Suspect]
     Active Substance: CANAKINUMAB
     Indication: STILL^S DISEASE
     Route: 065
  4. INFLIXIMAB [Suspect]
     Active Substance: INFLIXIMAB
     Indication: STILL^S DISEASE
     Route: 065
  5. TOCILIZUMAB. [Suspect]
     Active Substance: TOCILIZUMAB
     Indication: STILL^S DISEASE
     Route: 065
  6. COLCHICINE. [Suspect]
     Active Substance: COLCHICINE
     Indication: STILL^S DISEASE
     Route: 065
  7. AZATHIOPRINE. [Suspect]
     Active Substance: AZATHIOPRINE
     Indication: STILL^S DISEASE
     Route: 065
  8. ANAKINRA [Suspect]
     Active Substance: ANAKINRA
     Indication: STILL^S DISEASE
     Route: 065
  9. RITUXIMAB. [Suspect]
     Active Substance: RITUXIMAB
     Indication: STILL^S DISEASE
     Route: 065
  10. ABATACEPT [Suspect]
     Active Substance: ABATACEPT
     Indication: STILL^S DISEASE
     Route: 065
  11. ETANERCEPT [Suspect]
     Active Substance: ETANERCEPT
     Indication: STILL^S DISEASE
     Route: 065
  12. ADALIMUMAB [Suspect]
     Active Substance: ADALIMUMAB
     Indication: STILL^S DISEASE
     Route: 065

REACTIONS (11)
  - Abdominal pain [Unknown]
  - Hypotonia [Unknown]
  - Lymphadenopathy [Unknown]
  - Hodgkin^s disease [Unknown]
  - Infection [Unknown]
  - Intestinal perforation [Unknown]
  - Leukopenia [Unknown]
  - Hypertonia [Unknown]
  - Dyspnoea [Unknown]
  - Transaminases increased [Unknown]
  - Neutropenia [Unknown]
